FAERS Safety Report 9462226 (Version 1)
Quarter: 2013Q3

REPORT INFORMATION
  Report Type: Spontaneous
  Country: FR (occurrence: FR)
  Receive Date: 20130816
  Receipt Date: 20130816
  Transmission Date: 20140515
  Serious: Yes (Hospitalization, Other)
  Sender: FDA-Public Use
  Company Number: FR-ELI_LILLY_AND_COMPANY-FR201308002881

PATIENT
  Age: 53 Year
  Sex: Female

DRUGS (10)
  1. ZYPREXA [Suspect]
     Indication: BIPOLAR DISORDER
     Dosage: 7.5 MG, BID
     Route: 048
     Dates: start: 2012, end: 20130502
  2. ANDROCUR [Suspect]
     Dosage: 1 DF, UNKNOWN
     Route: 048
     Dates: start: 2006, end: 20130504
  3. ESTREVA [Suspect]
     Dosage: 1 DF, BID
     Route: 062
     Dates: start: 2006
  4. LEPTICUR [Concomitant]
     Dosage: 10 MG, QD
  5. FUCIDINE [Concomitant]
     Dosage: 1 DF, UNKNOWN
     Dates: start: 20130411, end: 20130412
  6. AUGMENTIN                               /SCH/ [Concomitant]
     Dosage: 1 DF, UNKNOWN
     Dates: start: 20130412, end: 20130422
  7. PYOSTACINE [Concomitant]
     Dosage: 1 DF, UNKNOWN
     Dates: start: 20130413, end: 20130415
  8. PYOSTACINE [Concomitant]
     Dosage: 1 DF, UNKNOWN
     Dates: start: 20130423, end: 20130429
  9. ZARZIO [Concomitant]
     Dosage: 1 DF, UNKNOWN
     Dates: start: 20130424
  10. SOLUMEDROL [Concomitant]
     Dosage: 1 DF, UNKNOWN
     Dates: start: 20130424

REACTIONS (3)
  - Pulmonary embolism [Recovered/Resolved]
  - Agranulocytosis [Unknown]
  - Autoimmune haemolytic anaemia [Unknown]
